FAERS Safety Report 17158155 (Version 2)
Quarter: 2020Q1

REPORT INFORMATION
  Report Type: Report from Study
  Country: CA (occurrence: CA)
  Receive Date: 20191216
  Receipt Date: 20200318
  Transmission Date: 20200409
  Serious: Yes (Death)
  Sender: FDA-Public Use
  Company Number: CA-PFIZER INC-2019536406

PATIENT
  Sex: Male

DRUGS (2)
  1. FLUDARABINE PHOSPHATE. [Suspect]
     Active Substance: FLUDARABINE PHOSPHATE
     Dosage: 25 MG/M2, ON DAYS 1 TO 5 EVERY 28 DAYS
     Route: 042
  2. FLUDARABINE PHOSPHATE. [Suspect]
     Active Substance: FLUDARABINE PHOSPHATE
     Indication: CHEMOTHERAPY
     Dosage: 25 MG/M2, ON DAYS 1 TO 5 EVERY 28 DAYS
     Route: 042

REACTIONS (3)
  - Stevens-Johnson syndrome [Fatal]
  - Skin exfoliation [Fatal]
  - Mucosal inflammation [Fatal]
